FAERS Safety Report 20086842 (Version 3)
Quarter: 2021Q4

REPORT INFORMATION
  Report Type: Spontaneous
  Country: US (occurrence: US)
  Receive Date: 20211118
  Receipt Date: 20211221
  Transmission Date: 20220303
  Serious: Yes (Other)
  Sender: FDA-Public Use
  Company Number: US-BAYER-2021A250198

PATIENT
  Age: 38 Year
  Sex: Male

DRUGS (4)
  1. KOGENATE FS [Suspect]
     Active Substance: ANTIHEMOPHILIC FACTOR, HUMAN RECOMBINANT
     Dosage: UNK
  2. KOGENATE FS [Suspect]
     Active Substance: ANTIHEMOPHILIC FACTOR, HUMAN RECOMBINANT
     Dosage: 1 DF
     Dates: start: 20211110
  3. KOGENATE FS [Suspect]
     Active Substance: ANTIHEMOPHILIC FACTOR, HUMAN RECOMBINANT
     Dosage: UNK, 2 MINOR AND 3 MAJOR DOSES FOR THE RIGHT THIGH BLEED TREATMENT
  4. KOGENATE FS [Suspect]
     Active Substance: ANTIHEMOPHILIC FACTOR, HUMAN RECOMBINANT
     Dosage: 5 DF, 3 MAJOR AND 2 MINOR DOSES FOR THE RIGHT ANKLE BLEED TREATMENT
     Dates: start: 20211205, end: 20211209

REACTIONS (3)
  - Myalgia [Recovered/Resolved]
  - Haemorrhage [Recovered/Resolved]
  - Haemarthrosis [None]

NARRATIVE: CASE EVENT DATE: 20211110
